FAERS Safety Report 9572598 (Version 1)
Quarter: 2013Q4

REPORT INFORMATION
  Report Type: Spontaneous
  Country: US (occurrence: US)
  Receive Date: 20131001
  Receipt Date: 20131001
  Transmission Date: 20140711
  Serious: No
  Sender: FDA-Public Use
  Company Number: US-PURDUE-USA-2012-0081374

PATIENT
  Sex: Female

DRUGS (1)
  1. BUTRANS [Suspect]
     Indication: PRODUCT USED FOR UNKNOWN INDICATION
     Dosage: 20 MCG, Q1H
     Route: 062
     Dates: start: 201002

REACTIONS (6)
  - Drug withdrawal syndrome [Recovered/Resolved]
  - Feeling cold [Recovered/Resolved]
  - Hot flush [Recovered/Resolved]
  - Abdominal pain upper [Recovered/Resolved]
  - Hyperhidrosis [Recovered/Resolved]
  - Product adhesion issue [Unknown]
